FAERS Safety Report 25871380 (Version 4)
Quarter: 2025Q4

REPORT INFORMATION
  Report Type: Spontaneous
  Country: EU (occurrence: EU)
  Receive Date: 20251001
  Receipt Date: 20251023
  Transmission Date: 20260118
  Serious: Yes (Hospitalization, Other)
  Sender: NOVARTIS
  Company Number: EU-002147023-NVSC2025ES151900

PATIENT
  Age: 37 Year
  Sex: Female

DRUGS (11)
  1. IPTACOPAN [Suspect]
     Active Substance: IPTACOPAN
     Indication: C3 glomerulopathy
     Dosage: UNK
     Route: 065
     Dates: start: 202507
  2. IPTACOPAN [Suspect]
     Active Substance: IPTACOPAN
     Dosage: 400 MG, QD (200 MG, BID)
     Route: 048
     Dates: start: 20250827
  3. TACROLIMUS [Suspect]
     Active Substance: TACROLIMUS
     Indication: Prophylaxis against transplant rejection
     Dosage: UNK
     Route: 065
  4. TACROLIMUS [Suspect]
     Active Substance: TACROLIMUS
     Indication: Immunosuppression
  5. MYFORTIC [Concomitant]
     Active Substance: MYCOPHENOLATE SODIUM
     Indication: Product used for unknown indication
     Dosage: 360 MG, BID
     Route: 065
  6. ENVARSUS XR [Concomitant]
     Active Substance: TACROLIMUS
     Indication: Product used for unknown indication
     Dosage: 8 MG, QD (8 MG, QD (AT BREAKFAST)
     Route: 065
  7. ADALIMUMAB [Concomitant]
     Active Substance: ADALIMUMAB
     Indication: Product used for unknown indication
     Dosage: UNK (ONE EVERY 15 DAYS)
     Route: 065
  8. ADALIMUMAB [Concomitant]
     Active Substance: ADALIMUMAB
     Dosage: UNK (ONE EVERY MONTH)
     Route: 065
  9. SULFAMETHOXAZOLE\TRIMETHOPRIM [Concomitant]
     Active Substance: SULFAMETHOXAZOLE\TRIMETHOPRIM
     Indication: Product used for unknown indication
     Dosage: UNK UG (160/800) (ON MONDAYS, WEDNESDAYS AND FRIDAYS)
     Route: 065
  10. VALGANCICLOVIR [Concomitant]
     Active Substance: VALGANCICLOVIR
     Indication: Product used for unknown indication
     Dosage: 450 MG, Q48H (450 MG (EVERY 48 HOURS)  )
     Route: 065
  11. ENALAPRIL [Concomitant]
     Active Substance: ENALAPRIL
     Indication: Product used for unknown indication
     Dosage: 40 MG, QD (20 MG, BID )
     Route: 065

REACTIONS (1)
  - Nephropathy toxic [Unknown]

NARRATIVE: CASE EVENT DATE: 20250901
